FAERS Safety Report 9714091 (Version 2)
Quarter: 2013Q4

REPORT INFORMATION
  Report Type: Spontaneous
  Country: US (occurrence: US)
  Receive Date: 20131126
  Receipt Date: 20131220
  Transmission Date: 20140711
  Serious: No
  Sender: FDA-Public Use
  Company Number: US-PFIZER INC-2013333366

PATIENT
  Sex: Male

DRUGS (2)
  1. VIAGRA [Suspect]
     Dosage: 100 MG, UNK
     Route: 048
  2. VIAGRA [Suspect]
     Dosage: 50 MG, UNK

REACTIONS (6)
  - Constipation [Unknown]
  - Ejaculation delayed [Unknown]
  - Abdominal pain upper [Unknown]
  - Anorgasmia [Unknown]
  - Flushing [Unknown]
  - Headache [Unknown]
